FAERS Safety Report 15673712 (Version 2)
Quarter: 2018Q4

REPORT INFORMATION
  Report Type: Spontaneous
  Country: US (occurrence: US)
  Receive Date: 20181129
  Receipt Date: 20181203
  Transmission Date: 20190205
  Serious: Yes (Other)
  Sender: FDA-Public Use
  Company Number: US-PFIZER INC-2018488429

PATIENT
  Age: 25 Year
  Sex: Female
  Weight: 52 kg

DRUGS (4)
  1. PANTOPRAZOLE [Concomitant]
     Active Substance: PANTOPRAZOLE
     Dosage: 40 MG, 1X/DAY
  2. DESVENLAFAXINE. [Suspect]
     Active Substance: DESVENLAFAXINE
     Indication: ANXIETY
  3. PROBIOTIC [BIFIDOBACTERIUM BIFIDUM;BIFIDOBACTERIUM LACTIS;BIFIDOBACTER [Concomitant]
     Dosage: UNK UNK, 1X/DAY
  4. DESVENLAFAXINE. [Suspect]
     Active Substance: DESVENLAFAXINE
     Indication: DEPRESSION
     Dosage: 100 MG, 1X/DAY
     Route: 048
     Dates: start: 2016

REACTIONS (4)
  - Coeliac disease [Not Recovered/Not Resolved]
  - Gluten sensitivity [Unknown]
  - Oesophagitis [Unknown]
  - Gastritis [Unknown]

NARRATIVE: CASE EVENT DATE: 201809
